FAERS Safety Report 14524287 (Version 2)
Quarter: 2019Q2

REPORT INFORMATION
  Report Type: Spontaneous
  Country: US (occurrence: US)
  Receive Date: 20180213
  Receipt Date: 20190412
  Transmission Date: 20190711
  Serious: No
  Sender: FDA-Public Use
  Company Number: US-PFIZER INC-2018059212

PATIENT
  Age: 34 Year
  Sex: Female
  Weight: 78.5 kg

DRUGS (4)
  1. GENOTROPIN MQ [Suspect]
     Active Substance: SOMATROPIN
     Indication: HYPOPITUITARISM
     Dosage: 0.4MG ONE INJECTION 6 DAYS OUT OF THE WEEK (NO DOSE ON SUNDAYS)
  2. GENOTROPIN MQ [Suspect]
     Active Substance: SOMATROPIN
     Indication: BONE DENSITY ABNORMAL
  3. GENOTROPIN MQ [Suspect]
     Active Substance: SOMATROPIN
     Indication: BONE DISORDER
     Dosage: UNK [0.4 PREDRAWN MINIQUICK SYRINGE SELF INJECTS IN HER THIGH ONCE A DAY]
  4. IMIPRAMINE [Concomitant]
     Active Substance: IMIPRAMINE

REACTIONS (3)
  - Blood cholesterol increased [Unknown]
  - Nausea [Recovered/Resolved]
  - Dizziness [Recovered/Resolved]

NARRATIVE: CASE EVENT DATE: 20190316
